FAERS Safety Report 15419808 (Version 2)
Quarter: 2020Q1

REPORT INFORMATION
  Report Type: Spontaneous
  Country: DE (occurrence: DE)
  Receive Date: 20180924
  Receipt Date: 20200213
  Transmission Date: 20200409
  Serious: Yes (Hospitalization)
  Sender: FDA-Public Use
  Company Number: PHHY2018DE103841

PATIENT
  Age: 81 Year
  Sex: Male
  Weight: 79 kg

DRUGS (18)
  1. HCT [Concomitant]
     Active Substance: HYDROCHLOROTHIAZIDE
     Indication: URINARY TRACT INFECTION
     Dosage: 25 MG, QD
     Route: 048
  2. LERCANIDIPIN ACTAVIS [Concomitant]
     Active Substance: LERCANIDIPINE
     Indication: HYPERTENSION
     Dosage: 10 MG, QD
     Route: 048
  3. METOHEXAL [Concomitant]
     Active Substance: METOPROLOL
     Indication: HYPERTENSION
     Dosage: 95 MG, QD
     Route: 048
  4. IVEMEND [Concomitant]
     Active Substance: FOSAPREPITANT DIMEGLUMINE
     Indication: PROPHYLAXIS
     Dosage: 150 MG, UNK
     Route: 041
     Dates: start: 20180802, end: 20180802
  5. SPIRONOLACTON [Concomitant]
     Active Substance: SPIRONOLACTONE
     Indication: HYPERTENSION
     Dosage: 50 MG, QD
     Route: 048
  6. TORASEMID [Concomitant]
     Active Substance: TORSEMIDE
     Indication: PROPHYLAXIS
     Dosage: 5 MG, QD
     Route: 048
     Dates: start: 20180822
  7. OMEPRAZOL [Concomitant]
     Active Substance: OMEPRAZOLE
     Indication: PROPHYLAXIS
     Dosage: 20 MG, QD
     Route: 048
  8. ABRAXANE [Suspect]
     Active Substance: PACLITAXEL
     Indication: NON-SMALL CELL LUNG CANCER
     Dosage: 100 MG/M2, QD
     Route: 041
     Dates: start: 20180802, end: 20180809
  9. TAMSULOSIN [Concomitant]
     Active Substance: TAMSULOSIN
     Indication: PROSTATE CANCER
     Dosage: 0.4 MG, QD
     Route: 048
     Dates: start: 20180822
  10. ATORVASTATIN [Concomitant]
     Active Substance: ATORVASTATIN
     Indication: HYPERLIPIDAEMIA
     Dosage: 20 MG, QD
     Route: 048
  11. NITROLINGUAL [Concomitant]
     Active Substance: NITROGLYCERIN
     Indication: ATRIAL FIBRILLATION
     Route: 065
  12. VALSACOR [Concomitant]
     Active Substance: VALSARTAN
     Indication: HYPERTENSION
     Dosage: 80 MG, QD
     Route: 048
  13. PHENPROCOUMON [Concomitant]
     Active Substance: PHENPROCOUMON
     Indication: PROPHYLAXIS
     Dosage: UNK
     Route: 065
  14. BETMIGA [Concomitant]
     Active Substance: MIRABEGRON
     Indication: URINARY TRACT INFECTION
     Dosage: 50 MG, QD
     Route: 048
  15. CARBOPLATIN. [Suspect]
     Active Substance: CARBOPLATIN
     Indication: NON-SMALL CELL LUNG CANCER
     Dosage: 5 MG*MIN/ML
     Route: 041
     Dates: start: 20180802, end: 20181016
  16. ABRAXANE [Suspect]
     Active Substance: PACLITAXEL
     Dosage: 100 MG/M2, QD
     Route: 041
     Dates: end: 20180823
  17. AMPHO MORONAL [Concomitant]
     Active Substance: AMPHOTERICIN B
     Indication: PROPHYLAXIS
     Dosage: 4 OT, QD
     Route: 065
     Dates: start: 20180822
  18. ABRAXANE [Suspect]
     Active Substance: PACLITAXEL
     Dosage: 100 MG/M2, QD
     Route: 041
     Dates: start: 2018, end: 20181016

REACTIONS (3)
  - Dermatitis [Recovering/Resolving]
  - Urinary tract infection [Unknown]
  - Neutropenia [Recovered/Resolved]

NARRATIVE: CASE EVENT DATE: 20180813
